FAERS Safety Report 14055810 (Version 1)
Quarter: 2017Q4

REPORT INFORMATION
  Report Type: Spontaneous
  Country: US (occurrence: US)
  Receive Date: 20171006
  Receipt Date: 20171006
  Transmission Date: 20180321
  Serious: No
  Sender: FDA-Public Use
  Company Number: US-HORIZON-PRE-0323-2017

PATIENT
  Sex: Female

DRUGS (1)
  1. RAYOS [Suspect]
     Active Substance: PREDNISONE
     Indication: PRODUCT USED FOR UNKNOWN INDICATION
     Dosage: 5 MG

REACTIONS (1)
  - Vomiting [Recovering/Resolving]
